FAERS Safety Report 14230564 (Version 1)
Quarter: 2017Q4

REPORT INFORMATION
  Report Type: Spontaneous
  Country: GB (occurrence: GB)
  Receive Date: 20171128
  Receipt Date: 20171128
  Transmission Date: 20180321
  Serious: Yes (Other)
  Sender: FDA-Public Use
  Company Number: GB-ABBVIE-17P-167-2175724-00

PATIENT
  Age: 36 Year
  Sex: Female

DRUGS (1)
  1. EPILIM [Suspect]
     Active Substance: VALPROATE SODIUM
     Indication: SEIZURE
     Route: 065

REACTIONS (6)
  - Seizure [Unknown]
  - Paranoia [Unknown]
  - Live birth [Unknown]
  - Depression [Unknown]
  - Exposure during pregnancy [Unknown]
  - Drug ineffective [Unknown]
